FAERS Safety Report 8252266-8 (Version None)
Quarter: 2012Q2

REPORT INFORMATION
  Report Type: 
  Country: None (occurrence: None)
  Receive Date: 20120402
  Receipt Date: 20110919
  Transmission Date: 20120825
  Serious: No
  Sender: FDA-Public Use
  Company Number: US-ABBOTT-11P-163-0857627-00

PATIENT
  Age: 61 Year
  Sex: Male
  Weight: 63.56 kg

DRUGS (5)
  1. ANDROGEL [Suspect]
     Indication: LIBIDO DECREASED
     Dosage: 1 IN 1 DAY, PACKETS
     Dates: start: 20090101, end: 20110901
  2. LIPITOR [Concomitant]
     Indication: PRODUCT USED FOR UNKNOWN INDICATION
  3. ANDROGEL [Suspect]
     Indication: BLOOD TESTOSTERONE DECREASED
     Dosage: 8 PUMPS DAILY
     Dates: start: 20110901
  4. LISINOPRIL [Concomitant]
     Indication: PRODUCT USED FOR UNKNOWN INDICATION
  5. OMEPRAZOLE [Concomitant]
     Indication: PRODUCT USED FOR UNKNOWN INDICATION

REACTIONS (3)
  - DRUG INEFFECTIVE [None]
  - DRUG ADMINISTERED AT INAPPROPRIATE SITE [None]
  - INCORRECT DOSE ADMINISTERED [None]
